FAERS Safety Report 13234448 (Version 1)
Quarter: 2017Q1

REPORT INFORMATION
  Report Type: Spontaneous
  Country: US (occurrence: US)
  Receive Date: 20170215
  Receipt Date: 20170215
  Transmission Date: 20170428
  Serious: Yes (Death, Other)
  Sender: FDA-Public Use
  Company Number: US-ELI_LILLY_AND_COMPANY-US201607013754

PATIENT
  Sex: Female

DRUGS (10)
  1. CYMBALTA [Suspect]
     Active Substance: DULOXETINE HYDROCHLORIDE
     Indication: PRODUCT USED FOR UNKNOWN INDICATION
     Dosage: 90 MG, QD
     Route: 048
  2. DOXYCYCLINE. [Concomitant]
     Active Substance: DOXYCYCLINE
     Dosage: 50 MG, QD
     Route: 048
  3. ZOCOR [Concomitant]
     Active Substance: SIMVASTATIN
     Dosage: 10 MG, EACH EVENING
     Route: 048
  4. CYMBALTA [Suspect]
     Active Substance: DULOXETINE HYDROCHLORIDE
     Dosage: 30 MG, QD
     Route: 048
  5. NORCO [Concomitant]
     Active Substance: ACETAMINOPHEN\HYDROCODONE BITARTRATE
     Dosage: 1 DF, EVERY 4 HRS
     Route: 048
  6. OMEPRAZOLE. [Concomitant]
     Active Substance: OMEPRAZOLE
     Dosage: 20 MG, UNKNOWN
     Route: 065
  7. ARIPIPRAZOLE. [Concomitant]
     Active Substance: ARIPIPRAZOLE
     Dosage: 5 MG, QD
     Route: 048
  8. ANUSOL HC                          /00028604/ [Concomitant]
     Dosage: 1 DF, BID
     Route: 054
  9. LOTRISONE [Concomitant]
     Active Substance: BETAMETHASONE DIPROPIONATE\CLOTRIMAZOLE
     Dosage: UNK, BID
     Route: 061
  10. TRIBENZOR [Concomitant]
     Active Substance: AMLODIPINE BESYLATE\HYDROCHLOROTHIAZIDE\OLMESARTAN MEDOXOMIL
     Dosage: 1 DF, QD
     Route: 048

REACTIONS (37)
  - Suicide attempt [Unknown]
  - Agitation [Unknown]
  - Dizziness [Unknown]
  - Tinnitus [Unknown]
  - Hypoaesthesia [Unknown]
  - Suicidal ideation [Unknown]
  - Vomiting [Unknown]
  - Depression [Unknown]
  - Confusional state [Unknown]
  - Insomnia [Unknown]
  - Neck pain [Unknown]
  - Death [Fatal]
  - Hallucination [Unknown]
  - Diarrhoea [Unknown]
  - Decreased appetite [Unknown]
  - Cough [Unknown]
  - Myalgia [Unknown]
  - Anxiety [Unknown]
  - Affect lability [Unknown]
  - Balance disorder [Unknown]
  - Asthenia [Unknown]
  - Paraesthesia [Unknown]
  - Hypomania [Unknown]
  - Vision blurred [Unknown]
  - Seizure [Unknown]
  - Drug withdrawal syndrome [Unknown]
  - Fatigue [Unknown]
  - Headache [Unknown]
  - Back pain [Unknown]
  - Nausea [Unknown]
  - Hyperhidrosis [Unknown]
  - Irritability [Unknown]
  - Lethargy [Unknown]
  - Phonophobia [Unknown]
  - Photophobia [Unknown]
  - Weight decreased [Unknown]
  - Vertigo [Unknown]
